FAERS Safety Report 4614005-9 (Version None)
Quarter: 2005Q1

REPORT INFORMATION
  Report Type: 
  Country: None (occurrence: None)
  Receive Date: 20050321
  Receipt Date: 20050303
  Transmission Date: 20050727
  Serious: Yes (Other)
  Sender: FDA-Public Use
  Company Number: JP-ROCHE-397941

PATIENT
  Age: 2 Year
  Sex: Female

DRUGS (2)
  1. TAMIFLU [Suspect]
     Route: 048
     Dates: start: 20050302, end: 20050302
  2. ALPINY [Suspect]
     Route: 054
     Dates: start: 20050302, end: 20050302

REACTIONS (4)
  - APHONIA [None]
  - PHARYNGEAL ERYTHEMA [None]
  - STRIDOR [None]
  - URTICARIA GENERALISED [None]
